FAERS Safety Report 16103473 (Version 1)
Quarter: 2019Q1

REPORT INFORMATION
  Report Type: Spontaneous
  Country: PH (occurrence: PH)
  Receive Date: 20190322
  Receipt Date: 20190322
  Transmission Date: 20190418
  Serious: Yes (Death, Other)
  Sender: FDA-Public Use
  Company Number: PH-ASTELLAS-2019US011696

PATIENT
  Age: 81 Year
  Sex: Male

DRUGS (1)
  1. XTANDI [Suspect]
     Active Substance: ENZALUTAMIDE
     Indication: PROSTATE CANCER
     Dosage: 160 MG (4 CAPSULES X 40MG), ONCE DAILY
     Route: 048
     Dates: start: 201707, end: 201812

REACTIONS (6)
  - Multiple organ dysfunction syndrome [Fatal]
  - Anaemia [Fatal]
  - Hypovolaemic shock [Fatal]
  - Prostate cancer stage IV [Fatal]
  - Blood creatinine increased [Unknown]
  - Septic shock [Fatal]

NARRATIVE: CASE EVENT DATE: 20190220
